FAERS Safety Report 9806977 (Version 2)
Quarter: 2014Q2

REPORT INFORMATION
  Report Type: Spontaneous
  Country: US (occurrence: US)
  Receive Date: 20140109
  Receipt Date: 20140423
  Transmission Date: 20141212
  Serious: Yes (Disabling)
  Sender: FDA-Public Use
  Company Number: US-PFIZER INC-2014006404

PATIENT
  Age: 55 Year
  Sex: Female
  Weight: 74.83 kg

DRUGS (4)
  1. CADUET [Suspect]
     Dosage: 5MG/20 MG, DAILY
  2. GLUCOTROL XL [Suspect]
     Dosage: 10 MG, DAILY
  3. GLUCOTROL [Suspect]
     Dosage: UNK
  4. ENALAPRIL [Concomitant]
     Indication: HYPERTENSION
     Dosage: 5 MG, DAILY

REACTIONS (2)
  - Limb injury [Unknown]
  - Malaise [Unknown]
